FAERS Safety Report 4644425-8 (Version None)
Quarter: 2005Q2

REPORT INFORMATION
  Report Type: 
  Country: None (occurrence: None)
  Receive Date: 20050331
  Receipt Date: 20041206
  Transmission Date: 20051028
  Serious: No
  Sender: FDA-Public Use
  Company Number: 04P-163-0282572-00

PATIENT
  Age: 51 Year
  Sex: Female
  Weight: 72.5755 kg

DRUGS (3)
  1. HUMIRA [Suspect]
     Indication: RHEUMATOID ARTHRITIS
     Dosage: 40 MG, 1 IN 2 WK, SUBCUTANEOUS
     Route: 058
     Dates: start: 20041119
  2. MELOXICAM [Concomitant]
  3. PREDNISONE [Concomitant]

REACTIONS (3)
  - MIGRAINE [None]
  - MUSCLE TWITCHING [None]
  - UNEVALUABLE EVENT [None]
